FAERS Safety Report 10405996 (Version 1)
Quarter: 2014Q3

REPORT INFORMATION
  Report Type: Spontaneous
  Country: US (occurrence: US)
  Receive Date: 20140825
  Receipt Date: 20140825
  Transmission Date: 20150326
  Serious: No
  Sender: FDA-Public Use
  Company Number: US-AMGEN INC.-USASP2014062915

PATIENT
  Age: 71 Year
  Sex: Male

DRUGS (2)
  1. METHOTREXATE [Suspect]
     Active Substance: METHOTREXATE
     Indication: PRODUCT USED FOR UNKNOWN INDICATION
     Dosage: 6 PILLS OF UNKNOWN DOSAGE, WEEKLY
     Route: 065
     Dates: start: 20130504, end: 201405
  2. ENBREL [Suspect]
     Active Substance: ETANERCEPT
     Indication: RHEUMATOID ARTHRITIS
     Dosage: 25 MG, 2 TIMES/WK
     Route: 065
     Dates: start: 20130925, end: 201407

REACTIONS (8)
  - Pain in extremity [Recovered/Resolved]
  - Malaise [Unknown]
  - Condition aggravated [Recovered/Resolved]
  - Dizziness [Unknown]
  - Local swelling [Recovered/Resolved]
  - Arthralgia [Recovered/Resolved]
  - Nausea [Unknown]
  - Joint swelling [Recovered/Resolved]
